FAERS Safety Report 5520833-8 (Version None)
Quarter: 2007Q4

REPORT INFORMATION
  Report Type: 
  Country: None (occurrence: None)
  Receive Date: 20071116
  Receipt Date: 20071116
  Transmission Date: 20080405
  Serious: Yes (Other)
  Sender: FDA-Public Use
  Company Number: None

PATIENT
  Sex: Female
  Weight: 110 kg

DRUGS (14)
  1. FOSPHENYTOIN [Suspect]
     Indication: CONVULSION
     Dosage: 1000 PE ONCE IV
     Route: 042
     Dates: start: 20071025, end: 20071026
  2. ASPIRIN [Concomitant]
  3. LORAZEPAM [Concomitant]
  4. ETOMIDATE [Concomitant]
  5. PROPOFOL [Concomitant]
  6. SUCCINYLCHOLINE CHLORIDE [Concomitant]
  7. LIDOCAINE [Concomitant]
  8. SODIUM NITROPRUSSIDE [Concomitant]
  9. LABETOLOL [Concomitant]
  10. MIDAZOLAM HCL [Concomitant]
  11. DOPAMINE HCL [Concomitant]
  12. ATROPINE [Concomitant]
  13. EPINEPHRINE [Concomitant]
  14. CLINDAMYCIN HCL [Concomitant]

REACTIONS (2)
  - RASH GENERALISED [None]
  - RASH MACULO-PAPULAR [None]
